FAERS Safety Report 21350466 (Version 2)
Quarter: 2022Q3

REPORT INFORMATION
  Report Type: Spontaneous
  Country: CH (occurrence: CH)
  Receive Date: 20220919
  Receipt Date: 20220927
  Transmission Date: 20221026
  Serious: Yes (Other)
  Sender: FDA-Public Use
  Company Number: CH-BAYER-2022A128975

PATIENT
  Sex: Female

DRUGS (1)
  1. VITRAKVI [Suspect]
     Active Substance: LAROTRECTINIB
     Indication: Invasive ductal breast carcinoma
     Dosage: UNK
     Dates: start: 202110

REACTIONS (2)
  - Breast cancer [Not Recovered/Not Resolved]
  - Off label use [None]
